FAERS Safety Report 9566695 (Version 1)
Quarter: 2013Q3

REPORT INFORMATION
  Report Type: Spontaneous
  Country: US (occurrence: US)
  Receive Date: 20130930
  Receipt Date: 20130930
  Transmission Date: 20140515
  Serious: No
  Sender: FDA-Public Use
  Company Number: US-AMGEN-USASP2012061942

PATIENT
  Age: 60 Year
  Sex: Female
  Weight: 53.52 kg

DRUGS (8)
  1. ENBREL [Suspect]
     Indication: PRODUCT USED FOR UNKNOWN INDICATION
     Dosage: 50 MG, QWK
     Route: 058
  2. SYNTHROID [Concomitant]
     Dosage: 100 MUG, UNK
  3. CELEBREX [Concomitant]
     Dosage: 100 MG, UNK
  4. CALCIUM +D                         /00944201/ [Concomitant]
     Dosage: UNK
  5. GINSENG                            /01384001/ [Concomitant]
     Dosage: 100 MG, UNK
  6. ESSENTIAL [Concomitant]
     Dosage: UNK
  7. INOSITOL [Concomitant]
     Dosage: 500 MG, UNK
  8. TYLENOL W/CODEINE NO. 3 [Concomitant]
     Dosage: UNK

REACTIONS (1)
  - Nasopharyngitis [Unknown]
